FAERS Safety Report 6713394-9 (Version None)
Quarter: 2010Q2

REPORT INFORMATION
  Report Type: 
  Country: None (occurrence: None)
  Receive Date: 20100506
  Receipt Date: 20100430
  Transmission Date: 20101027
  Serious: Yes (Hospitalization)
  Sender: FDA-Public Use
  Company Number: FR-ROCHE-700843

PATIENT
  Sex: Male

DRUGS (12)
  1. APRANAX [Suspect]
     Route: 048
     Dates: start: 20100322, end: 20100324
  2. DI-ANTALVIC [Suspect]
     Route: 048
     Dates: start: 20100322, end: 20100324
  3. LASIX [Suspect]
     Indication: RALES
     Dosage: 40 MG BOLUS
     Route: 065
  4. RAMIPRIL [Suspect]
     Indication: DRUG USE FOR UNKNOWN INDICATION
     Route: 065
  5. ATORVASTATIN CALCIUM [Concomitant]
  6. KARDEGIC [Concomitant]
     Route: 048
  7. SINEMET [Concomitant]
  8. ZOLPIDEM [Concomitant]
  9. METFORMIN HCL [Concomitant]
  10. LYRICA [Concomitant]
  11. GARDENAL [Concomitant]
  12. DOMPERIDONE [Concomitant]

REACTIONS (6)
  - BRADYCARDIA [None]
  - HYPERKALAEMIA [None]
  - HYPOTHERMIA [None]
  - MALAISE [None]
  - NODAL ARRHYTHMIA [None]
  - RENAL FAILURE ACUTE [None]
